FAERS Safety Report 8904163 (Version 1)
Quarter: 2012Q4

REPORT INFORMATION
  Report Type: 
  Country: AT (occurrence: AT)
  Receive Date: 20121112
  Receipt Date: 20121112
  Transmission Date: 20130627
  Serious: Yes (Hospitalization, Other)
  Sender: FDA-Public Use
  Company Number: AT-PFIZER INC-2012279262

PATIENT
  Age: 28 Year
  Sex: Female

DRUGS (1)
  1. DALACIN [Suspect]
     Indication: DENTAL DISCOMFORT
     Dosage: 300 mg, UNK
     Route: 048
     Dates: start: 20120115, end: 20120123

REACTIONS (3)
  - Drug reaction with eosinophilia and systemic symptoms [Recovered/Resolved]
  - Drug hypersensitivity [Recovered/Resolved]
  - Viral rash [Recovered/Resolved]
